FAERS Safety Report 9456114 (Version 1)
Quarter: 2013Q3

REPORT INFORMATION
  Report Type: Spontaneous
  Country: US (occurrence: US)
  Receive Date: 20130813
  Receipt Date: 20130813
  Transmission Date: 20140515
  Serious: Yes (Death, Other)
  Sender: FDA-Public Use
  Company Number: US-ENDO PHARMACEUTICALS INC.-OPER20130015

PATIENT
  Age: 21 Year
  Sex: Male

DRUGS (11)
  1. OPANA ER [Suspect]
     Indication: DRUG ABUSE
     Dosage: UNKNOWN
  2. ALCOHOL [Interacting]
     Indication: ALCOHOL ABUSE
     Dosage: UNKNOWN
     Route: 065
     Dates: start: 20111001
  3. COCAINE [Suspect]
     Indication: DRUG ABUSE
     Dosage: UNKNOWN
     Route: 065
     Dates: start: 20111001
  4. ALPRAZOLAM IR TABLETS [Concomitant]
     Indication: PRODUCT USED FOR UNKNOWN INDICATION
     Dosage: UNKNOWN
     Route: 048
  5. TRAZODONE HYDROCHLORIDE TABLETS [Concomitant]
     Indication: PRODUCT USED FOR UNKNOWN INDICATION
     Dosage: UNKNOWN
     Route: 048
  6. DEXILANT [Concomitant]
     Indication: PRODUCT USED FOR UNKNOWN INDICATION
     Dosage: UNKNOWN
     Route: 048
  7. CYMBALTA [Concomitant]
     Indication: PRODUCT USED FOR UNKNOWN INDICATION
     Dosage: UNKNOWN
     Route: 048
  8. ABILIFY [Concomitant]
     Indication: PRODUCT USED FOR UNKNOWN INDICATION
     Dosage: UNKNOWN
     Route: 048
  9. LUNESTA [Concomitant]
     Indication: PRODUCT USED FOR UNKNOWN INDICATION
     Dosage: UNKNOWN
     Route: 048
  10. MARIJUANA [Concomitant]
     Indication: SUBSTANCE USE
     Dosage: UNKNOWN
     Route: 065
  11. METHAMPHETAMINE [Concomitant]
     Indication: DRUG ABUSE
     Dosage: UNKNOWN
     Route: 065

REACTIONS (6)
  - Toxicity to various agents [Fatal]
  - Respiratory failure [Fatal]
  - Overdose [Fatal]
  - Drug interaction [Not Recovered/Not Resolved]
  - Incorrect route of drug administration [Not Recovered/Not Resolved]
  - Drug abuse [Not Recovered/Not Resolved]
